FAERS Safety Report 11315749 (Version 1)
Quarter: 2015Q3

REPORT INFORMATION
  Report Type: Spontaneous
  Country: US (occurrence: None)
  Receive Date: 20150724
  Receipt Date: 20150724
  Transmission Date: 20151125
  Serious: No
  Sender: FDA-Public Use
  Company Number: None

PATIENT
  Age: 41 Year
  Sex: Female
  Weight: 52.62 kg

DRUGS (1)
  1. MIRENA [Suspect]
     Active Substance: LEVONORGESTREL
     Indication: CONTRACEPTION
     Dates: start: 20150204, end: 20150721

REACTIONS (5)
  - Nausea [None]
  - Anxiety [None]
  - Alopecia [None]
  - Weight decreased [None]
  - Appetite disorder [None]

NARRATIVE: CASE EVENT DATE: 20150204
